FAERS Safety Report 6534811-3 (Version None)
Quarter: 2010Q1

REPORT INFORMATION
  Report Type: 
  Country: None (occurrence: None)
  Receive Date: 20100112
  Receipt Date: 20100101
  Transmission Date: 20100710
  Serious: Yes (Other)
  Sender: FDA-Public Use
  Company Number: GB-EISAI INC.-E2020-05504-SPO-GB

PATIENT
  Sex: Female

DRUGS (5)
  1. ARICEPT [Suspect]
     Indication: VASCULAR DEMENTIA
     Route: 048
     Dates: start: 20090101, end: 20090101
  2. ARICEPT [Suspect]
     Route: 048
     Dates: start: 20090601, end: 20091101
  3. OMEPRAZOLE [Concomitant]
  4. LEVOTHYROXINE SODIUM [Concomitant]
  5. ADCAL D3 [Concomitant]

REACTIONS (2)
  - ABNORMAL BEHAVIOUR [None]
  - PLEUROTHOTONUS [None]
